FAERS Safety Report 11491424 (Version 1)
Quarter: 2015Q3

REPORT INFORMATION
  Report Type: Spontaneous
  Country: IE (occurrence: IE)
  Receive Date: 20150910
  Receipt Date: 20150910
  Transmission Date: 20151125
  Serious: Yes (Other)
  Sender: FDA-Public Use
  Company Number: IE-TEVA-588215ISR

PATIENT
  Age: 21 Year
  Sex: Male

DRUGS (1)
  1. ESOMEPRAZOLE TEVA PHARMA [Suspect]
     Active Substance: ESOMEPRAZOLE
     Indication: DYSPEPSIA
     Dosage: 40 MILLIGRAM DAILY; TABLETS GASTRO-RESISTANT
     Route: 048
     Dates: start: 20150728, end: 20150731

REACTIONS (5)
  - Paraesthesia oral [Recovered/Resolved]
  - Lip swelling [Recovered/Resolved]
  - Mouth swelling [Recovered/Resolved]
  - Constipation [Recovered/Resolved]
  - Malaise [Recovered/Resolved]

NARRATIVE: CASE EVENT DATE: 20150731
